FAERS Safety Report 20985849 (Version 1)
Quarter: 2022Q2

REPORT INFORMATION
  Report Type: Spontaneous
  Country: US (occurrence: None)
  Receive Date: 20220617
  Receipt Date: 20220617
  Transmission Date: 20220721
  Serious: Yes (Hospitalization)
  Sender: FDA-Public Use
  Company Number: None

PATIENT
  Sex: Female

DRUGS (2)
  1. METHOTREXATE [Suspect]
     Active Substance: METHOTREXATE
     Indication: Gastrointestinal disorder
     Dosage: TAKE 8 TABLETS BY MOUTH EVERY WEEK?
     Route: 048
     Dates: start: 20210226
  2. METHOTREXATE [Suspect]
     Active Substance: METHOTREXATE
     Dosage: FREQUENCY : WEEKLY;?
     Route: 048

REACTIONS (3)
  - Dyspnoea [None]
  - Cardiac failure [None]
  - Infection [None]
